FAERS Safety Report 17209390 (Version 1)
Quarter: 2019Q4

REPORT INFORMATION
  Report Type: Spontaneous
  Country: FR (occurrence: FR)
  Receive Date: 20191227
  Receipt Date: 20191227
  Transmission Date: 20200122
  Serious: Yes (Other)
  Sender: FDA-Public Use
  Company Number: FR-MYLANLABS-2019M1127818

PATIENT
  Age: 26 Year
  Sex: Female

DRUGS (27)
  1. METHYLPREDNISOLONE. [Interacting]
     Active Substance: METHYLPREDNISOLONE
     Indication: PRODUCT USED FOR UNKNOWN INDICATION
     Dosage: 50 MG, ONCE A DAY
     Route: 048
  2. AMPHOTERICIN B, LIPOSOME [Interacting]
     Active Substance: AMPHOTERICIN B
     Indication: BRONCHOPULMONARY ASPERGILLOSIS
     Dosage: 180 MG, QD
     Route: 042
  3. IMIPENEM [Concomitant]
     Active Substance: IMIPENEM
     Indication: PRODUCT USED FOR UNKNOWN INDICATION
     Dosage: UNK
     Route: 042
  4. DEXTROSE. [Concomitant]
     Active Substance: DEXTROSE
     Indication: PRODUCT USED FOR UNKNOWN INDICATION
     Dosage: UNK
     Route: 065
  5. VORICONAZOLE. [Interacting]
     Active Substance: VORICONAZOLE
     Dosage: 400 MILLIGRAM, QD
     Route: 042
  6. VORICONAZOLE. [Interacting]
     Active Substance: VORICONAZOLE
     Indication: PRODUCT USED FOR UNKNOWN INDICATION
     Dosage: UNK
     Route: 048
  7. FUROSEMIDE. [Concomitant]
     Active Substance: FUROSEMIDE
     Indication: PRODUCT USED FOR UNKNOWN INDICATION
     Dosage: 80 MG, QD
     Route: 042
  8. VORICONAZOLE. [Interacting]
     Active Substance: VORICONAZOLE
     Dosage: 200 MILLIGRAM, QD
     Route: 042
  9. GABAPENTIN. [Concomitant]
     Active Substance: GABAPENTIN
     Indication: PRODUCT USED FOR UNKNOWN INDICATION
     Dosage: 10 MG, BID
     Route: 048
  10. PARACETAMOL [Interacting]
     Active Substance: ACETAMINOPHEN
     Indication: PRODUCT USED FOR UNKNOWN INDICATION
     Dosage: 300 MG, QD
     Route: 048
  11. PARACETAMOL [Interacting]
     Active Substance: ACETAMINOPHEN
     Dosage: 1000 MG, 3 TIMES A DAY
     Route: 048
  12. POTASSIUM CHLORIDE. [Concomitant]
     Active Substance: POTASSIUM CHLORIDE
     Indication: PRODUCT USED FOR UNKNOWN INDICATION
     Dosage: UNK
     Route: 065
  13. VORICONAZOLE. [Interacting]
     Active Substance: VORICONAZOLE
     Indication: ASPERGILLUS INFECTION
     Dosage: 300 MG, TWO TIMES A DAY
     Route: 042
  14. VORICONAZOLE. [Interacting]
     Active Substance: VORICONAZOLE
     Dosage: 200 MG, TWO TIMES A DAY
     Route: 042
  15. VENLAFAXINE [Interacting]
     Active Substance: VENLAFAXINE HYDROCHLORIDE
     Indication: PRODUCT USED FOR UNKNOWN INDICATION
     Dosage: 37.5 MG, ONCE A DAY
     Route: 048
  16. AMPHOTERICIN B. [Interacting]
     Active Substance: AMPHOTERICIN B
     Indication: PRODUCT USED FOR UNKNOWN INDICATION
     Dosage: 180 MG,QD
     Route: 042
  17. NICARDIPINE [Interacting]
     Active Substance: NICARDIPINE
     Indication: PRODUCT USED FOR UNKNOWN INDICATION
     Dosage: 50 MG, ONCE A DAY
     Route: 042
  18. VANCOMYCIN [Concomitant]
     Active Substance: VANCOMYCIN
     Indication: PRODUCT USED FOR UNKNOWN INDICATION
     Dosage: 2000 MG, QD
     Route: 042
  19. ACYCLOVIR                          /00587301/ [Concomitant]
     Active Substance: ACYCLOVIR
     Indication: PRODUCT USED FOR UNKNOWN INDICATION
     Dosage: 250 MG, QD
     Route: 048
  20. VORICONAZOLE. [Suspect]
     Active Substance: VORICONAZOLE
     Indication: BRONCHOPULMONARY ASPERGILLOSIS
     Dosage: UNK
     Route: 042
  21. VORICONAZOLE. [Interacting]
     Active Substance: VORICONAZOLE
     Dosage: 300 MG, TWO TIMES A DAY
     Route: 042
  22. ALPRAZOLAM. [Interacting]
     Active Substance: ALPRAZOLAM
     Indication: PRODUCT USED FOR UNKNOWN INDICATION
     Dosage: 0.25 MG, TWO TIMES A DAY
     Route: 048
  23. CIPROFLOXACIN. [Interacting]
     Active Substance: CIPROFLOXACIN
     Indication: PRODUCT USED FOR UNKNOWN INDICATION
     Dosage: 200 MG, TWO TIMES A DAY
     Route: 042
  24. ZOLPIDEM [Interacting]
     Active Substance: ZOLPIDEM TARTRATE
     Indication: PRODUCT USED FOR UNKNOWN INDICATION
     Dosage: 10 MG, ONCE A DAY
     Route: 048
  25. AMPHOTERICIN B. [Interacting]
     Active Substance: AMPHOTERICIN B
     Indication: PRODUCT USED FOR UNKNOWN INDICATION
     Dosage: 180 MG, ONCE A DAY
     Route: 048
  26. AMPHOTERICIN B, LIPOSOME [Interacting]
     Active Substance: AMPHOTERICIN B
     Indication: PRODUCT USED FOR UNKNOWN INDICATION
     Dosage: UNK
     Route: 048
  27. METOCLOPRAMIDE. [Concomitant]
     Active Substance: METOCLOPRAMIDE
     Indication: PRODUCT USED FOR UNKNOWN INDICATION
     Dosage: 20 MG, TID
     Route: 048

REACTIONS (9)
  - Cough [Recovered/Resolved]
  - Drug level decreased [Recovered/Resolved]
  - Drug level below therapeutic [Unknown]
  - Haemoptysis [Recovered/Resolved]
  - Drug interaction [Recovered/Resolved]
  - Drug level increased [Recovered/Resolved]
  - Vomiting [Recovered/Resolved]
  - Treatment failure [Unknown]
  - Aspergillus infection [Unknown]
